FAERS Safety Report 10356330 (Version 4)
Quarter: 2014Q3

REPORT INFORMATION
  Report Type: Spontaneous
  Country: JP (occurrence: JP)
  Receive Date: 20140801
  Receipt Date: 20140926
  Transmission Date: 20150326
  Serious: Yes (Hospitalization, Other)
  Sender: FDA-Public Use
  Company Number: JP-TAKEDA-2014TJP009694AA

PATIENT
  Age: 73 Year
  Sex: Female
  Weight: 54.1 kg

DRUGS (9)
  1. LASIX [Concomitant]
     Active Substance: FUROSEMIDE
     Indication: RENAL FAILURE CHRONIC
     Dosage: 120 MG, QD
     Route: 048
  2. CALTAN [Concomitant]
     Active Substance: CALCIUM CARBONATE
     Indication: HYPERPHOSPHATAEMIA
     Dosage: 1500 MG, BID
     Route: 048
  3. BROTIZOLAM M [Suspect]
     Active Substance: BROTIZOLAM
     Indication: INSOMNIA
     Dosage: 0.25 MG, QD
     Route: 048
  4. JUVELA N [Concomitant]
     Active Substance: TOCOPHERYL NICOTINATE, D-.ALPHA.
     Indication: PERIPHERAL VASCULAR DISORDER
     Dosage: 100 MG, BID
     Route: 048
  5. MIDPELIQ [Concomitant]
     Indication: PERITONEAL DIALYSIS
     Dosage: 1,500 ML, TID
     Route: 033
  6. KETOPROFEN. [Concomitant]
     Active Substance: KETOPROFEN
     Dosage: 40 MG, UNK
     Route: 048
  7. FEBURIC [Concomitant]
     Active Substance: FEBUXOSTAT
     Indication: HYPERURICAEMIA
     Dosage: 10 MG, QD
     Route: 048
  8. TAKEPRON OD TABLETS 15 [Suspect]
     Active Substance: LANSOPRAZOLE
     Indication: PROPHYLAXIS AGAINST GASTROINTESTINAL ULCER
     Dosage: 15 MG, QD
     Route: 048
     Dates: start: 20120412, end: 20140817
  9. CALONAL [Concomitant]
     Active Substance: ACETAMINOPHEN
     Indication: HEADACHE
     Dosage: 200 MG, TID
     Route: 048

REACTIONS (4)
  - Clostridium test positive [Recovered/Resolved]
  - Colitis microscopic [Recovered/Resolved]
  - Pseudomembranous colitis [Recovered/Resolved]
  - Peritonitis [Recovered/Resolved]

NARRATIVE: CASE EVENT DATE: 20120626
